FAERS Safety Report 15476350 (Version 1)
Quarter: 2018Q4

REPORT INFORMATION
  Report Type: Spontaneous
  Country: IT (occurrence: IT)
  Receive Date: 20181009
  Receipt Date: 20181009
  Transmission Date: 20190205
  Serious: Yes (Hospitalization)
  Sender: FDA-Public Use
  Company Number: IT-BIOGEN-2018BI00638025

PATIENT
  Age: 22 Year
  Sex: Female

DRUGS (1)
  1. TECFIDERA [Suspect]
     Active Substance: DIMETHYL FUMARATE
     Indication: MULTIPLE SCLEROSIS
     Route: 048
     Dates: start: 20180503, end: 20180530

REACTIONS (4)
  - Abdominal tenderness [Recovered/Resolved]
  - Leukocytosis [Recovered/Resolved]
  - Gastrointestinal oedema [Recovered/Resolved]
  - Neutrophilia [Recovered/Resolved]

NARRATIVE: CASE EVENT DATE: 20180530
